FAERS Safety Report 17190762 (Version 1)
Quarter: 2019Q4

REPORT INFORMATION
  Report Type: Spontaneous
  Country: US (occurrence: US)
  Receive Date: 20191220
  Receipt Date: 20191220
  Transmission Date: 20200122
  Serious: Yes (Life-Threatening, Hospitalization)
  Sender: FDA-Public Use
  Company Number: None

PATIENT
  Age: 52 Year
  Sex: Female
  Weight: 89 kg

DRUGS (7)
  1. METFORMIN [Concomitant]
     Active Substance: METFORMIN HYDROCHLORIDE
     Dates: start: 20170106
  2. DULAGLUTIDE. [Suspect]
     Active Substance: DULAGLUTIDE
     Indication: DIABETES MELLITUS
     Dosage: ?          OTHER FREQUENCY:WEEKLY;?
     Route: 058
     Dates: start: 20191212, end: 20191220
  3. EMPAGLIFLOZIN [Concomitant]
     Active Substance: EMPAGLIFLOZIN
     Dates: start: 20180821
  4. ASPIRIN. [Concomitant]
     Active Substance: ASPIRIN
     Dates: start: 20191013
  5. CARVEDILOL. [Concomitant]
     Active Substance: CARVEDILOL
     Dates: start: 20161010
  6. LOSARTAN. [Concomitant]
     Active Substance: LOSARTAN
     Dates: start: 20170503
  7. OMEPRAZOLE. [Concomitant]
     Active Substance: OMEPRAZOLE
     Dates: start: 20190921

REACTIONS (2)
  - Neck pain [None]
  - Angioedema [None]

NARRATIVE: CASE EVENT DATE: 20191220
